FAERS Safety Report 5190327-0 (Version None)
Quarter: 2006Q4

REPORT INFORMATION
  Report Type: 
  Country: None (occurrence: None)
  Receive Date: 20061222
  Receipt Date: 20060501
  Transmission Date: 20070319
  Serious: No
  Sender: FDA-Public Use
  Company Number: US-AMGEN-US178072

PATIENT
  Sex: Female
  Weight: 58.6 kg

DRUGS (5)
  1. ARANESP [Suspect]
     Indication: RENAL FAILURE CHRONIC
     Route: 058
     Dates: start: 20050124
  2. COZAAR [Concomitant]
     Route: 065
  3. NORVASC [Concomitant]
     Route: 065
  4. LASIX [Concomitant]
     Route: 065
  5. AMBIEN [Concomitant]
     Route: 065

REACTIONS (4)
  - BLOOD PRESSURE INCREASED [None]
  - DIZZINESS [None]
  - FEELING ABNORMAL [None]
  - MUSCULAR WEAKNESS [None]
